FAERS Safety Report 6800800-4 (Version None)
Quarter: 2010Q2

REPORT INFORMATION
  Report Type: 
  Country: None (occurrence: None)
  Receive Date: 20100629
  Receipt Date: 20100622
  Transmission Date: 20101027
  Serious: Yes (Hospitalization, Other)
  Sender: FDA-Public Use
  Company Number: JP-PFIZER INC-2010005774

PATIENT
  Age: 75 Year
  Sex: Female
  Weight: 54 kg

DRUGS (9)
  1. HYSRON-H [Suspect]
     Indication: BREAST CANCER
     Dosage: 600 MG, 1X/DAY
     Route: 048
     Dates: start: 20090413
  2. INSULIN [Concomitant]
     Indication: TYPE 2 DIABETES MELLITUS
     Dosage: 27 UNITS, UNK
     Dates: start: 20030101
  3. INSULIN [Concomitant]
     Dosage: 64 UNITS, UNK
  4. BIOMET [Concomitant]
     Indication: BREAST CANCER
     Dosage: UNK
     Route: 048
     Dates: start: 20081027
  5. ENDOXAN [Concomitant]
     Indication: BREAST CANCER
     Dosage: 50 MG, 2X/DAY
     Route: 048
     Dates: start: 20090413
  6. RINDERON [Concomitant]
     Dosage: UNK
     Dates: start: 20070820
  7. PORTOLAC [Concomitant]
     Indication: HEPATIC CIRRHOSIS
     Dosage: 12 G, 3X/DAY
     Route: 048
  8. ALDACTONE [Concomitant]
     Indication: HEPATIC CIRRHOSIS
     Dosage: 25 MG, 2X/DAY
     Route: 048
  9. LIVACT [Concomitant]
     Indication: HEPATIC CIRRHOSIS
     Dosage: 4.15 G, 2X/DAY
     Route: 048

REACTIONS (2)
  - DIABETES MELLITUS [None]
  - METABOLIC ENCEPHALOPATHY [None]
